FAERS Safety Report 14633644 (Version 2)
Quarter: 2018Q2

REPORT INFORMATION
  Report Type: Spontaneous
  Country: DE (occurrence: DE)
  Receive Date: 20180314
  Receipt Date: 20180418
  Transmission Date: 20180711
  Serious: Yes (Hospitalization)
  Sender: FDA-Public Use
  Company Number: DE-CIPLA LTD.-2018DE10763

PATIENT

DRUGS (3)
  1. BEVACIZUMAB. [Suspect]
     Active Substance: BEVACIZUMAB
     Indication: RECTAL CANCER METASTATIC
     Dosage: 7.5 MG/KG, UNK (LAST APPLICATION PRIOR TO THE EVENT ON 02-MAR-2009 (6TH CYCLE))
     Route: 042
     Dates: end: 20090302
  2. OXALIPLATIN. [Suspect]
     Active Substance: OXALIPLATIN
     Indication: RECTAL CANCER METASTATIC
     Dosage: 130 MG/M2, CYCLICAL, LAST APPLICATION PRIOR TO THE EVENT ON 2-MAR-2009 (6TH CYCLE)
     Route: 042
     Dates: start: 20090302, end: 20090302
  3. CAPECITABINE. [Suspect]
     Active Substance: CAPECITABINE
     Indication: RECTAL CANCER METASTATIC
     Dosage: 3500 MG/M2, DAILY (6TH CYCLE, COMMULATIVE DOSE OF 49000 MG/M2)
     Route: 048
     Dates: start: 20090302, end: 20090315

REACTIONS (7)
  - Decreased appetite [Unknown]
  - Vomiting [Unknown]
  - Diarrhoea [Recovered/Resolved]
  - Erosive duodenitis [Unknown]
  - Gastritis [Unknown]
  - Duodenitis [Unknown]
  - Gastrooesophageal reflux disease [Unknown]

NARRATIVE: CASE EVENT DATE: 20090315
